FAERS Safety Report 8033164-1 (Version None)
Quarter: 2012Q1

REPORT INFORMATION
  Report Type: 
  Country: None (occurrence: None)
  Receive Date: 20120110
  Receipt Date: 20120110
  Transmission Date: 20120608
  Serious: Yes (Other)
  Sender: FDA-Public Use
  Company Number: None

PATIENT
  Sex: Male
  Weight: 54.431 kg

DRUGS (1)
  1. PROPECIA [Suspect]
     Indication: ALOPECIA
     Dosage: 1 TABLET
     Route: 048
     Dates: start: 20040801, end: 20070801

REACTIONS (8)
  - BLOOD FOLLICLE STIMULATING HORMONE INCREASED [None]
  - SEMEN VOLUME DECREASED [None]
  - POSTHITIS [None]
  - PREMATURE EJACULATION [None]
  - MALE ORGASMIC DISORDER [None]
  - ALOPECIA [None]
  - ERECTILE DYSFUNCTION [None]
  - SPERM CONCENTRATION DECREASED [None]
